FAERS Safety Report 8316516-1 (Version None)
Quarter: 2012Q2

REPORT INFORMATION
  Report Type: 
  Country: None (occurrence: None)
  Receive Date: 20120427
  Receipt Date: 20120419
  Transmission Date: 20120825
  Serious: Yes (Other)
  Sender: FDA-Public Use
  Company Number: PHHY2009CA16887

PATIENT
  Sex: Female

DRUGS (3)
  1. SANDOSTATIN LAR [Suspect]
     Dosage: 30 MG, BIW
     Route: 030
     Dates: start: 20070206
  2. SANDOSTATIN LAR [Suspect]
     Indication: METASTATIC CARCINOID TUMOUR
     Dosage: 30 MG, EVERY 3 WEEKS
     Route: 030
     Dates: start: 20060119
  3. SANDOSTATIN LAR [Suspect]
     Dosage: 30 MG, EVERY 3 WEEKS
     Route: 030
     Dates: start: 20110222

REACTIONS (19)
  - BLISTER [None]
  - ABDOMINAL PAIN [None]
  - INCREASED UPPER AIRWAY SECRETION [None]
  - CENTRAL NERVOUS SYSTEM LESION [None]
  - FLATULENCE [None]
  - FLANK PAIN [None]
  - FATIGUE [None]
  - ORAL CANDIDIASIS [None]
  - ABDOMINAL DISTENSION [None]
  - SWELLING [None]
  - PAIN IN EXTREMITY [None]
  - OEDEMA PERIPHERAL [None]
  - DEPRESSION [None]
  - BLOOD PRESSURE SYSTOLIC INCREASED [None]
  - PAIN [None]
  - GROIN PAIN [None]
  - PRURITUS [None]
  - RASH [None]
  - COUGH [None]
